FAERS Safety Report 4800577-8 (Version None)
Quarter: 2005Q4

REPORT INFORMATION
  Report Type: 
  Country: None (occurrence: None)
  Receive Date: 20051011
  Receipt Date: 20050930
  Transmission Date: 20060501
  Serious: Yes (Hospitalization)
  Sender: FDA-Public Use
  Company Number: 2005136979

PATIENT
  Age: 93 Year
  Sex: Female

DRUGS (7)
  1. SERTRALINE HCL [Suspect]
     Indication: DEPRESSION
     Dosage: 100 MG (100 MG, 1 IN 1 D), ORAL
     Route: 048
  2. NITRAZEPAM [Concomitant]
  3. AMLODIPINE [Concomitant]
  4. LANSOPRAZOLE [Concomitant]
  5. DIGOXIN [Concomitant]
  6. ACETYLSALICYLIC ACID SRT [Concomitant]
  7. MOVICOL (MACROGOL, POTASSIUM CHLORIDE, SODIUM BICARBONATE, SODIUM CHLO [Concomitant]

REACTIONS (3)
  - BLOOD SODIUM DECREASED [None]
  - FALL [None]
  - FRACTURE [None]
